FAERS Safety Report 8333208-3 (Version None)
Quarter: 2012Q2

REPORT INFORMATION
  Report Type: 
  Country: None (occurrence: None)
  Receive Date: 20120503
  Receipt Date: 20120424
  Transmission Date: 20120825
  Serious: Yes (Death, Life-Threatening, Hospitalization)
  Sender: FDA-Public Use
  Company Number: US-BAYER-2011-106963

PATIENT
  Age: 57 Year
  Sex: Male
  Weight: 57.6 kg

DRUGS (5)
  1. SYNTHROID [Concomitant]
  2. NEXAVAR [Suspect]
     Indication: THYROID CANCER
     Dosage: 400 MG, BID
     Route: 048
     Dates: start: 20111001, end: 20111001
  3. IBUPROFEN [Concomitant]
  4. TYLENOL W/ CODEINE NO. 3 [Concomitant]
  5. LEVOTHYROXINE SODIUM [Concomitant]
     Dosage: 137 ?G, QD (AM)

REACTIONS (5)
  - HYPERTENSION [None]
  - PULSELESS ELECTRICAL ACTIVITY [None]
  - DEATH [None]
  - CEREBRAL HAEMORRHAGE [None]
  - HYDROCEPHALUS [None]
